FAERS Safety Report 6075451-2 (Version None)
Quarter: 2009Q1

REPORT INFORMATION
  Report Type: 
  Country: None (occurrence: None)
  Receive Date: 20090210
  Receipt Date: 20090210
  Transmission Date: 20090719
  Serious: Yes (Hospitalization)
  Sender: FDA-Public Use
  Company Number: None

PATIENT
  Age: 47 Year
  Sex: Female
  Weight: 91.3998 kg

DRUGS (8)
  1. ALLOPURINOL [Suspect]
     Dosage: 300MG ONCE DAILY PO
     Route: 048
  2. PLAVIX [Concomitant]
  3. ASPIRIN [Concomitant]
  4. ALTACE [Concomitant]
  5. METFORMIN [Concomitant]
  6. INSULIN [Concomitant]
  7. METOPROLOL [Concomitant]
  8. AMLODIPINE [Concomitant]

REACTIONS (2)
  - ACUTE MYOCARDIAL INFARCTION [None]
  - INTERVERTEBRAL DISC DISPLACEMENT [None]
